FAERS Safety Report 9883337 (Version 2)
Quarter: 2014Q1

REPORT INFORMATION
  Report Type: Report from Study
  Country: JP (occurrence: JP)
  Receive Date: 20140210
  Receipt Date: 20140226
  Transmission Date: 20141002
  Serious: Yes (Hospitalization)
  Sender: FDA-Public Use
  Company Number: JP-ROCHE-1342607

PATIENT
  Age: 76 Year
  Sex: Female

DRUGS (9)
  1. METHOXY POLYETHYLENE GLYCOL-EPOETIN BETA [Suspect]
     Indication: NEPHROGENIC ANAEMIA
     Route: 042
     Dates: start: 20130628
  2. NESINA [Concomitant]
     Route: 048
     Dates: end: 20131106
  3. NORVASC [Concomitant]
     Route: 048
  4. BLOPRESS [Concomitant]
     Route: 048
  5. ARTIST [Concomitant]
     Route: 048
  6. LIPITOR [Concomitant]
     Route: 048
  7. FERROMIA [Concomitant]
     Indication: DIABETIC NEPHROPATHY
     Route: 048
  8. LASIX [Concomitant]
     Indication: PROPHYLAXIS
     Route: 042
     Dates: start: 20131102, end: 20131107
  9. LASIX [Concomitant]
     Indication: PROPHYLAXIS
     Route: 048
     Dates: start: 20131108

REACTIONS (3)
  - Oedema [Recovered/Resolved]
  - Pleural effusion [Recovered/Resolved]
  - Hypertension [Unknown]
